FAERS Safety Report 18193805 (Version 3)
Quarter: 2020Q3

REPORT INFORMATION
  Report Type: Report from Study
  Country: US (occurrence: US)
  Receive Date: 20200825
  Receipt Date: 20200929
  Transmission Date: 20201103
  Serious: Yes (Death)
  Sender: FDA-Public Use
  Company Number: NVSC2020US233183

PATIENT
  Sex: Male

DRUGS (1)
  1. COSENTYX [Suspect]
     Active Substance: SECUKINUMAB
     Indication: ANKYLOSING SPONDYLITIS
     Dosage: 150 MG, EVERY 4 WEEKS
     Route: 065
     Dates: start: 20160816, end: 201909

REACTIONS (2)
  - Chronic obstructive pulmonary disease [Fatal]
  - Pneumonia [Fatal]
